FAERS Safety Report 6530146-3 (Version None)
Quarter: 2009Q4

REPORT INFORMATION
  Report Type: 
  Country: None (occurrence: None)
  Receive Date: 20091231
  Receipt Date: 20091216
  Transmission Date: 20100525
  Serious: Yes (Hospitalization, Other)
  Sender: FDA-Public Use
  Company Number: 8037582

PATIENT
  Weight: 70 kg

DRUGS (8)
  1. CERTOLIZUMAB PEGOL (CERTOLIZUMAB PEGOL) [Suspect]
     Indication: RHEUMATOID ARTHRITIS
     Dosage: (200 MG SEE IMAGE
     Route: 058
     Dates: start: 20050426, end: 20060329
  2. CERTOLIZUMAB PEGOL (CERTOLIZUMAB PEGOL) [Suspect]
     Indication: RHEUMATOID ARTHRITIS
     Dosage: (200 MG SEE IMAGE
     Route: 058
     Dates: start: 20080521, end: 20081211
  3. CERTOLIZUMAB PEGOL (CERTOLIZUMAB PEGOL) [Suspect]
     Indication: RHEUMATOID ARTHRITIS
     Dosage: (200 MG SEE IMAGE
     Route: 058
     Dates: start: 20060412
  4. METHOTREXATE [Concomitant]
  5. IBUPROFEN [Concomitant]
  6. NYDRAZID [Concomitant]
  7. PYRIDOXIN [Concomitant]
  8. CITALOPRAM [Concomitant]

REACTIONS (30)
  - ACINETOBACTER INFECTION [None]
  - ANAEMIA [None]
  - ASTHENIA [None]
  - CANDIDIASIS [None]
  - DECREASED APPETITE [None]
  - DEHYDRATION [None]
  - DEVICE RELATED INFECTION [None]
  - ELECTROLYTE IMBALANCE [None]
  - EMPYEMA [None]
  - ENTEROBACTER INFECTION [None]
  - FATIGUE [None]
  - GAIT DISTURBANCE [None]
  - HEPATIC CYST [None]
  - HEPATIC FAILURE [None]
  - HEPATORENAL FAILURE [None]
  - HYPOTENSION [None]
  - LUNG ABSCESS [None]
  - LYMPHADENOPATHY MEDIASTINAL [None]
  - MALNUTRITION [None]
  - NODULE [None]
  - PLEURAL DISORDER [None]
  - PLEURAL EFFUSION [None]
  - PLEURAL FISTULA [None]
  - PNEUMONIA [None]
  - RESPIRATORY FAILURE [None]
  - SEPSIS [None]
  - STREPTOCOCCAL INFECTION [None]
  - THROMBOCYTOPENIA [None]
  - TRACHEOBRONCHITIS [None]
  - WHITE BLOOD CELL COUNT DECREASED [None]
